FAERS Safety Report 8288583-5 (Version None)
Quarter: 2012Q2

REPORT INFORMATION
  Report Type: 
  Country: None (occurrence: None)
  Receive Date: 20120416
  Receipt Date: 20120411
  Transmission Date: 20120825
  Serious: Yes (Other)
  Sender: FDA-Public Use
  Company Number: US-MERCK-1204USA01817

PATIENT
  Age: 43 Year
  Sex: Female

DRUGS (2)
  1. FOSAMAX [Suspect]
     Route: 065
  2. ZOMETA [Suspect]
     Route: 065

REACTIONS (9)
  - BREAST CANCER [None]
  - ADVERSE EVENT [None]
  - OSTEONECROSIS OF JAW [None]
  - HYPOTHYROIDISM [None]
  - ANXIETY [None]
  - TYPE 2 DIABETES MELLITUS [None]
  - METASTASES TO BONE [None]
  - ULCER [None]
  - ARTHRALGIA [None]
